FAERS Safety Report 8538850-2 (Version None)
Quarter: 2012Q3

REPORT INFORMATION
  Report Type: 
  Country: None (occurrence: None)
  Receive Date: 20120713
  Receipt Date: 20120702
  Transmission Date: 20120928
  Serious: Yes (Other)
  Sender: FDA-Public Use
  Company Number: 2012P1048112

PATIENT

DRUGS (1)
  1. MILRINONE (NO PREF. NAME) [Suspect]
     Dosage: 20 MG; X1; IV
     Route: 042

REACTIONS (1)
  - HYPOTENSION [None]
